FAERS Safety Report 19620881 (Version 1)
Quarter: 2021Q3

REPORT INFORMATION
  Report Type: Spontaneous
  Country: US (occurrence: US)
  Receive Date: 20210727
  Receipt Date: 20210727
  Transmission Date: 20211014
  Serious: Yes (Hospitalization)
  Sender: FDA-Public Use
  Company Number: None

PATIENT
  Age: 58 Year
  Sex: Female

DRUGS (11)
  1. METOPROLOL. [Concomitant]
     Active Substance: METOPROLOL
  2. FOLIC ACID. [Concomitant]
     Active Substance: FOLIC ACID
  3. PLAVIX [Concomitant]
     Active Substance: CLOPIDOGREL BISULFATE
  4. METHOTREXATE. [Concomitant]
     Active Substance: METHOTREXATE
  5. GAMMAGARD S/D [Suspect]
     Active Substance: HUMAN IMMUNOGLOBULIN G
     Indication: POLYMYOSITIS
     Dosage: ?          OTHER FREQUENCY:DAILY, ON 2 CONSECUTIVE D;?
     Route: 042
     Dates: start: 20190912
  6. ASPIRIN. [Concomitant]
     Active Substance: ASPIRIN
  7. TOUJEO SOLO [Concomitant]
  8. PREDNISONE. [Concomitant]
     Active Substance: PREDNISONE
  9. VITAMIN D [Concomitant]
     Active Substance: VITAMIN D NOS
  10. ISOSORBIDE. [Concomitant]
     Active Substance: ISOSORBIDE
  11. PROZAC [Concomitant]
     Active Substance: FLUOXETINE HYDROCHLORIDE

REACTIONS (2)
  - Fall [None]
  - Infusion related reaction [None]

NARRATIVE: CASE EVENT DATE: 20210623
